FAERS Safety Report 17434557 (Version 2)
Quarter: 2020Q1

REPORT INFORMATION
  Report Type: Spontaneous
  Country: US (occurrence: US)
  Receive Date: 20200219
  Receipt Date: 20200304
  Transmission Date: 20200409
  Serious: Yes (Other)
  Sender: FDA-Public Use
  Company Number: US-PFIZER INC-2020069291

PATIENT
  Age: 58 Year
  Sex: Female
  Weight: 114.31 kg

DRUGS (3)
  1. DIAZEPAM. [Suspect]
     Active Substance: DIAZEPAM
     Dosage: 2 MG, UNK
  2. MELOXICAM. [Suspect]
     Active Substance: MELOXICAM
     Dosage: 15 MG, UNK
  3. PREGABALIN. [Suspect]
     Active Substance: PREGABALIN
     Indication: NEUROPATHY PERIPHERAL
     Dosage: 150 MG, 2X/DAY

REACTIONS (3)
  - Weight increased [Unknown]
  - Mobility decreased [Unknown]
  - Intervertebral disc protrusion [Unknown]
